FAERS Safety Report 13477261 (Version 1)
Quarter: 2017Q2

REPORT INFORMATION
  Report Type: Spontaneous
  Country: ZA (occurrence: ZA)
  Receive Date: 20170425
  Receipt Date: 20170425
  Transmission Date: 20170830
  Serious: Yes (Other)
  Sender: FDA-Public Use
  Company Number: ZA-APOTEX-2017AP011117

PATIENT
  Age: 59 Year
  Sex: Male

DRUGS (2)
  1. DORMONOCT [Concomitant]
     Active Substance: LOPRAZOLAM
     Indication: PRODUCT USED FOR UNKNOWN INDICATION
     Dosage: UNK, AT NIGHT
  2. PAXIL [Suspect]
     Active Substance: PAROXETINE HYDROCHLORIDE
     Indication: TINNITUS
     Dosage: 12 DF (MG/G), UNK
     Route: 065
     Dates: end: 201701

REACTIONS (9)
  - Blood glucose increased [Unknown]
  - Oral discomfort [Unknown]
  - Nasal discomfort [Unknown]
  - Vision blurred [Unknown]
  - Pain [Unknown]
  - Insomnia [Unknown]
  - Pruritus [Unknown]
  - Eye irritation [Unknown]
  - Anxiety [Unknown]
